FAERS Safety Report 5255740-1 (Version None)
Quarter: 2007Q1

REPORT INFORMATION
  Report Type: 
  Country: None (occurrence: None)
  Receive Date: 20070305
  Receipt Date: 20070222
  Transmission Date: 20070707
  Serious: Yes (Hospitalization, Other)
  Sender: FDA-Public Use
  Company Number: US-PFIZER INC-2007014805

PATIENT
  Sex: Female
  Weight: 59 kg

DRUGS (3)
  1. NORVASC [Suspect]
     Route: 048
  2. PREDNISONE [Concomitant]
     Route: 048
  3. SYNTHROID [Concomitant]
     Route: 048

REACTIONS (4)
  - ASTHENIA [None]
  - BRONCHOSPASM [None]
  - DYSPNOEA [None]
  - GASTROOESOPHAGEAL REFLUX DISEASE [None]
